FAERS Safety Report 6969160-2 (Version None)
Quarter: 2010Q3

REPORT INFORMATION
  Report Type: 
  Country: None (occurrence: None)
  Receive Date: 20100907
  Receipt Date: 20100825
  Transmission Date: 20110219
  Serious: Yes (Hospitalization, Other)
  Sender: FDA-Public Use
  Company Number: PHEH2004US10740

PATIENT

DRUGS (31)
  1. ZOMETA [Suspect]
     Indication: METASTASES TO BONE
     Dosage: MONTHLY
     Route: 042
     Dates: start: 20010101, end: 20040601
  2. ARIMIDEX [Concomitant]
     Indication: BREAST CANCER
  3. GLUCOVANCE [Concomitant]
     Indication: DIABETES MELLITUS
  4. PREDNISONE [Concomitant]
  5. MONOPRIL [Concomitant]
     Indication: HYPERTENSION
  6. DOXEPIN HCL [Concomitant]
     Indication: DEPRESSION
  7. WELLBUTRIN [Concomitant]
     Indication: DEPRESSION
  8. OXYCONTIN [Concomitant]
     Indication: BONE PAIN
     Dosage: 80 MG, QD
     Dates: start: 20010101
  9. NEURONTIN [Concomitant]
  10. HYDROCHLOROTHIAZIDE [Concomitant]
  11. POTASSIUM CHLORIDE [Concomitant]
  12. XANAX [Concomitant]
  13. TEMAZEPAM [Concomitant]
  14. PHENERGAN ^AVENTIS PHARMA^ [Concomitant]
  15. IBUPROFEN [Concomitant]
  16. BLACK COHOSH [Concomitant]
  17. IRON [Concomitant]
  18. ZOLADEX [Concomitant]
  19. GLYBURIDE AND METFORMIN HCL [Concomitant]
  20. ALFAXALONE [Concomitant]
  21. PROMETHAZINE [Concomitant]
  22. ASPIRIN [Concomitant]
  23. MOTRIN [Concomitant]
  24. VICOPROFEN [Concomitant]
  25. REGLAN [Concomitant]
  26. OXYCODONE [Concomitant]
  27. ZYRTEC [Concomitant]
  28. SEPTRA [Concomitant]
  29. TOPROL-XL [Concomitant]
  30. AUGMENTIN '125' [Concomitant]
  31. VICODIN [Concomitant]

REACTIONS (66)
  - ACCOMMODATION DISORDER [None]
  - ALTERED VISUAL DEPTH PERCEPTION [None]
  - ANAEMIA [None]
  - ARTHRALGIA [None]
  - ARTHROPATHY [None]
  - BACK PAIN [None]
  - BONE DEBRIDEMENT [None]
  - CELLULITIS [None]
  - COCCYDYNIA [None]
  - CONSTIPATION [None]
  - COUGH [None]
  - DENTAL CARIES [None]
  - DIABETES MELLITUS [None]
  - DIPLOPIA [None]
  - DYSPNOEA [None]
  - ENDODONTIC PROCEDURE [None]
  - EXCORIATION [None]
  - EYE PAIN [None]
  - FACIAL PAIN [None]
  - FATIGUE [None]
  - GINGIVAL DISORDER [None]
  - GINGIVAL PAIN [None]
  - HEPATIC STEATOSIS [None]
  - HOT FLUSH [None]
  - HYPOGLYCAEMIA [None]
  - HYPOKALAEMIA [None]
  - INTERVERTEBRAL DISC DEGENERATION [None]
  - INTERVERTEBRAL DISC PROTRUSION [None]
  - IRON DEFICIENCY ANAEMIA [None]
  - JAW DISORDER [None]
  - JOINT SWELLING [None]
  - LACRIMATION INCREASED [None]
  - LUNG NEOPLASM [None]
  - LYMPHOEDEMA [None]
  - MOUTH ULCERATION [None]
  - NASAL CONGESTION [None]
  - NAUSEA [None]
  - NEPHROLITHIASIS [None]
  - NEURODERMATITIS [None]
  - OEDEMA [None]
  - OSTEONECROSIS OF JAW [None]
  - PAIN [None]
  - PAIN IN JAW [None]
  - PARAESTHESIA [None]
  - PYREXIA [None]
  - RASH [None]
  - RENAL FAILURE [None]
  - RETINOPATHY [None]
  - SEPSIS [None]
  - SKIN DISORDER [None]
  - SPLINT APPLICATION [None]
  - TONGUE INJURY [None]
  - TOOTH DISORDER [None]
  - TOOTH EXTRACTION [None]
  - ULCER [None]
  - URETERAL DISORDER [None]
  - VENOUS ANGIOMA OF BRAIN [None]
  - VERTIGO [None]
  - VISION BLURRED [None]
  - VISUAL IMPAIRMENT [None]
  - VITREOUS FLOATERS [None]
  - VOMITING [None]
  - WEIGHT INCREASED [None]
  - WITHDRAWAL SYNDROME [None]
  - WOUND [None]
  - WOUND INFECTION STAPHYLOCOCCAL [None]
